FAERS Safety Report 6905236-3 (Version None)
Quarter: 2010Q3

REPORT INFORMATION
  Report Type: 
  Country: None (occurrence: None)
  Receive Date: 20100802
  Receipt Date: 20100720
  Transmission Date: 20110219
  Serious: Yes (Death)
  Sender: FDA-Public Use
  Company Number: 8052729

PATIENT
  Sex: Male

DRUGS (6)
  1. CERTOLIZUMAB PEGOL [Suspect]
     Indication: CROHN'S DISEASE
     Dosage: SEE IMAGE
     Route: 058
     Dates: start: 20080814, end: 20080826
  2. CERTOLIZUMAB PEGOL [Suspect]
     Indication: CROHN'S DISEASE
     Dosage: SEE IMAGE
     Route: 058
     Dates: start: 20081201, end: 20081201
  3. CERTOLIZUMAB PEGOL [Suspect]
     Indication: CROHN'S DISEASE
     Dosage: SEE IMAGE
     Route: 058
     Dates: start: 20090306, end: 20090901
  4. MERCAPTOPURINE [Concomitant]
  5. PREDNISONE [Concomitant]
  6. PENTASA [Concomitant]

REACTIONS (4)
  - CARDIAC ARREST [None]
  - DEEP VEIN THROMBOSIS [None]
  - INJECTION SITE SWELLING [None]
  - PULMONARY EMBOLISM [None]
